FAERS Safety Report 10243825 (Version 2)
Quarter: 2014Q3

REPORT INFORMATION
  Report Type: Spontaneous
  Country: IT (occurrence: IT)
  Receive Date: 20140618
  Receipt Date: 20140923
  Transmission Date: 20150326
  Serious: Yes (Other)
  Sender: FDA-Public Use
  Company Number: IT-TEVA-488229ISR

PATIENT
  Age: 80 Year
  Sex: Male

DRUGS (10)
  1. FOLINA 5 MG [Concomitant]
     Dosage: 5 MILLIGRAM DAILY; SOFT CAPSULE
  2. PANTECTA 20 MG [Concomitant]
     Dosage: 20 MILLIGRAM DAILY; GASTRO RESISTANT TABLET
  3. CARDIOASPIRIN 100MG [Concomitant]
     Dosage: 100 MILLIGRAM DAILY; GASTRO RESISTANT TABLET
     Dates: start: 20140606
  4. DIOSMECTAL 3G [Concomitant]
     Dosage: 9 GRAM DAILY; POWDER FOR ORAL SUSPENSION
  5. MEMANTINA MYLAN 20 MG [Suspect]
     Active Substance: MEMANTINE
     Dosage: 20 MILLIGRAM DAILY;
     Route: 048
     Dates: start: 20140418
  6. COVERLAM 10MG+10MG [Concomitant]
     Dosage: 10 MILLIGRAM DAILY;
  7. KALEIDON IDRO [Concomitant]
  8. TICLOPIDINA DOROM 250MG [Suspect]
     Active Substance: TICLOPIDINE HYDROCHLORIDE
     Indication: CEREBRAL ISCHAEMIA
     Dosage: 250 MILLIGRAM DAILY;
     Route: 048
     Dates: start: 20140419, end: 20140428
  9. QUETIAPINA TEVA  25 MG [Suspect]
     Active Substance: QUETIAPINE
     Dosage: 62.5 MILLIGRAM DAILY;
     Route: 048
     Dates: start: 20140325
  10. TRITTICO 25MG/ML [Concomitant]
     Dosage: 20 GTT DAILY;

REACTIONS (2)
  - Gastrointestinal disorder [Recovered/Resolved]
  - Diarrhoea [Recovered/Resolved]

NARRATIVE: CASE EVENT DATE: 20140501
